FAERS Safety Report 4293567-8 (Version None)
Quarter: 2004Q1

REPORT INFORMATION
  Report Type: 
  Country: None (occurrence: None)
  Receive Date: 20040210
  Receipt Date: 20040202
  Transmission Date: 20041129
  Serious: Yes (Hospitalization)
  Sender: FDA-Public Use
  Company Number: JP-JNJFOC-20040200974

PATIENT
  Age: 70 Year
  Sex: 0

DRUGS (1)
  1. ITRACONAZOLE [Suspect]
     Indication: ONYCHOMYCOSIS
     Dosage: 50 MG, IN 1 DAY, ORAL
     Route: 048
     Dates: start: 20030901, end: 20031201

REACTIONS (1)
  - RHABDOMYOLYSIS [None]
